FAERS Safety Report 13202636 (Version 4)
Quarter: 2018Q2

REPORT INFORMATION
  Report Type: Report from Study
  Country: US (occurrence: US)
  Receive Date: 20170209
  Receipt Date: 20180605
  Transmission Date: 20180711
  Serious: No
  Sender: FDA-Public Use
  Company Number: US-ALEXION PHARMACEUTICALS INC.-A201701176

PATIENT
  Sex: Male

DRUGS (4)
  1. SOLIRIS [Suspect]
     Active Substance: ECULIZUMAB
     Dosage: 900 MG, Q2W
     Route: 042
  2. SOLIRIS [Suspect]
     Active Substance: ECULIZUMAB
     Indication: PAROXYSMAL NOCTURNAL HAEMOGLOBINURIA
     Dosage: UNK
     Route: 065
     Dates: start: 20090218
  3. SOLIRIS [Suspect]
     Active Substance: ECULIZUMAB
     Dosage: 900 MG, EVERY 14 DAYS
     Route: 042
     Dates: start: 20090218, end: 20180509
  4. SOLIRIS [Suspect]
     Active Substance: ECULIZUMAB
     Dosage: 900 MG, UNK
     Route: 065
     Dates: end: 20171025

REACTIONS (15)
  - Sleep apnoea syndrome [Unknown]
  - Serum ferritin increased [Unknown]
  - Hepatic steatosis [Unknown]
  - Blood lactate dehydrogenase increased [Unknown]
  - Red blood cell count decreased [Unknown]
  - Laboratory test abnormal [Unknown]
  - Bilirubin conjugated increased [Unknown]
  - Liver function test increased [Unknown]
  - Hepatitis A antibody positive [Unknown]
  - Haemochromatosis [Unknown]
  - Blood creatinine decreased [Unknown]
  - Alanine aminotransferase increased [Unknown]
  - Hepatomegaly [Unknown]
  - Splenomegaly [Unknown]
  - Blood bilirubin increased [Unknown]

NARRATIVE: CASE EVENT DATE: 20120830
